FAERS Safety Report 7941696-7 (Version None)
Quarter: 2011Q4

REPORT INFORMATION
  Report Type: 
  Country: None (occurrence: None)
  Receive Date: 20111128
  Receipt Date: 20111128
  Transmission Date: 20120403
  Serious: No
  Sender: FDA-Public Use
  Company Number: None

PATIENT
  Age: 35 Year
  Sex: Female
  Weight: 65.77 kg

DRUGS (1)
  1. COUMADIN [Suspect]
     Indication: PELVIC VENOUS THROMBOSIS
     Dosage: 7.5 MG
     Route: 048
     Dates: start: 20111029, end: 20111125

REACTIONS (1)
  - DYSPNOEA EXERTIONAL [None]
